FAERS Safety Report 19122984 (Version 2)
Quarter: 2021Q2

REPORT INFORMATION
  Report Type: Spontaneous
  Country: US (occurrence: US)
  Receive Date: 20210412
  Receipt Date: 20210518
  Transmission Date: 20210717
  Serious: No
  Sender: FDA-Public Use
  Company Number: US-SA-2021SA109206

PATIENT
  Age: 80 Year
  Sex: Male

DRUGS (1)
  1. TOUJEO [Suspect]
     Active Substance: INSULIN GLARGINE
     Indication: TYPE 1 DIABETES MELLITUS
     Dosage: 8 IU, QD
     Dates: start: 20190329

REACTIONS (3)
  - Blood glucose increased [Unknown]
  - Liquid product physical issue [Unknown]
  - Poor quality product administered [Unknown]
